FAERS Safety Report 4269890-X (Version None)
Quarter: 2004Q1

REPORT INFORMATION
  Report Type: 
  Country: None (occurrence: None)
  Receive Date: 20040112
  Receipt Date: 20040112
  Transmission Date: 20041129
  Serious: Yes (Hospitalization)
  Sender: FDA-Public Use
  Company Number: None

PATIENT
  Age: 49 Year
  Sex: Male

DRUGS (8)
  1. CLONIDINE [Suspect]
     Indication: HYPERTENSION
     Dosage: 0.3 MG BID
     Dates: start: 20020701
  2. COMBIVENT [Concomitant]
  3. CLONIDINE [Concomitant]
  4. NPH INSULIN [Concomitant]
  5. COLCHICINE [Concomitant]
  6. FOSINOPRIL SODIUM [Concomitant]
  7. SILDENAFIL [Concomitant]
  8. CITALOPRAM [Concomitant]

REACTIONS (2)
  - DIZZINESS [None]
  - SINUS BRADYCARDIA [None]
